FAERS Safety Report 18913244 (Version 1)
Quarter: 2021Q1

REPORT INFORMATION
  Report Type: Spontaneous
  Country: CA (occurrence: CA)
  Receive Date: 20210219
  Receipt Date: 20210219
  Transmission Date: 20210420
  Serious: Yes (Other)
  Sender: FDA-Public Use
  Company Number: CA-TEVA-2021-CA-1880715

PATIENT
  Age: 76 Year
  Sex: Male
  Weight: 79 kg

DRUGS (11)
  1. HYDROMORPHONE [Concomitant]
     Active Substance: HYDROMORPHONE
  2. VITAMIN D [Concomitant]
     Active Substance: VITAMIN D NOS
  3. CANDESARTAN. [Concomitant]
     Active Substance: CANDESARTAN
  4. RABEPRAZOLE [Suspect]
     Active Substance: RABEPRAZOLE
     Indication: PROPHYLAXIS
     Dosage: 40 MILLIGRAM DAILY;
     Route: 048
  5. CALCIUM [Concomitant]
     Active Substance: CALCIUM
  6. JARDIANCE [Concomitant]
     Active Substance: EMPAGLIFLOZIN
  7. PREDNISONE. [Concomitant]
     Active Substance: PREDNISONE
  8. AMLODIPINE [Concomitant]
     Active Substance: AMLODIPINE BESYLATE
  9. GLICLAZIDE [Concomitant]
     Active Substance: GLICLAZIDE
  10. JANUVIA [Concomitant]
     Active Substance: SITAGLIPTIN PHOSPHATE
     Route: 048
  11. ASA [Concomitant]
     Active Substance: ASPIRIN

REACTIONS (3)
  - Renal impairment [Recovered/Resolved]
  - Blood creatinine increased [Recovered/Resolved]
  - Blood pressure inadequately controlled [Recovered/Resolved]
